FAERS Safety Report 7085982-4 (Version None)
Quarter: 2010Q4

REPORT INFORMATION
  Report Type: 
  Country: None (occurrence: None)
  Receive Date: 20101105
  Receipt Date: 20101103
  Transmission Date: 20110411
  Serious: Yes (Hospitalization, Other)
  Sender: FDA-Public Use
  Company Number: RU-ELI_LILLY_AND_COMPANY-RU201011001028

PATIENT
  Sex: Female
  Weight: 29.5 kg

DRUGS (1)
  1. FLUOXETINE HYDROCHLORIDE [Suspect]
     Indication: MAJOR DEPRESSION
     Dosage: UNK, DAILY (1/D)
     Route: 048
     Dates: start: 20101022

REACTIONS (1)
  - ULNA FRACTURE [None]
